FAERS Safety Report 19026932 (Version 1)
Quarter: 2021Q1

REPORT INFORMATION
  Report Type: Spontaneous
  Country: US (occurrence: US)
  Receive Date: 20210318
  Receipt Date: 20210318
  Transmission Date: 20210420
  Serious: Yes (Other)
  Sender: FDA-Public Use
  Company Number: US-GLAXOSMITHKLINE-USCH2021013699

PATIENT
  Sex: Female

DRUGS (1)
  1. ABREVA [Suspect]
     Active Substance: DOCOSANOL
     Indication: BURNING SENSATION
     Dosage: UNK

REACTIONS (5)
  - Intentional dose omission [Unknown]
  - Drug effective for unapproved indication [Unknown]
  - Product complaint [Unknown]
  - Drug ineffective [Unknown]
  - Drug dependence [Unknown]
